FAERS Safety Report 4273874-5 (Version None)
Quarter: 2004Q1

REPORT INFORMATION
  Report Type: 
  Country: None (occurrence: None)
  Receive Date: 20040115
  Receipt Date: 20040105
  Transmission Date: 20041129
  Serious: Yes (Hospitalization)
  Sender: FDA-Public Use
  Company Number: J200370599

PATIENT
  Age: 77 Year
  Sex: Female

DRUGS (11)
  1. ZOLPIDEM TARTRATE [Suspect]
     Indication: INSOMNIA
     Dosage: 10MG PO
     Route: 048
     Dates: start: 20021204
  2. ROHYPNOL  - (FLUNITRAZEPAM) - TABLET - 2MG [Suspect]
     Indication: INSOMNIA
     Dosage: 2MG PO
     Route: 048
     Dates: start: 20031030
  3. CARBIDOPA AND LEVODOPA [Concomitant]
  4. PERMAX [Concomitant]
  5. NORVASC [Concomitant]
  6. FAMOTIDINE [Concomitant]
  7. DEPAS (ETIZOLAM) [Concomitant]
  8. PURSENNID (SENNOSIDE) [Concomitant]
  9. FLAVOXATE HCL [Concomitant]
  10. VASOMET (TERAZOSIN HYDROCHLORIDE) [Concomitant]
  11. HACHIMMI-JIO-GAN (HACHIMI-JIO-GAN) [Concomitant]

REACTIONS (6)
  - BLOOD PRESSURE DECREASED [None]
  - DEPRESSED LEVEL OF CONSCIOUSNESS [None]
  - FALL [None]
  - HYPOTONIA [None]
  - MIOSIS [None]
  - OVERDOSE [None]
